FAERS Safety Report 6894852-3 (Version None)
Quarter: 2010Q3

REPORT INFORMATION
  Report Type: 
  Country: None (occurrence: None)
  Receive Date: 20100708
  Receipt Date: 20100414
  Transmission Date: 20110219
  Serious: Yes (Other)
  Sender: FDA-Public Use
  Company Number: 2010047974

PATIENT
  Age: 54 Year
  Sex: Female
  Weight: 66.7 kg

DRUGS (3)
  1. CHANTIX [Suspect]
     Indication: SMOKING CESSATION THERAPY
     Dosage: 0.5 MG, 1X/DAY, ORAL : 0.5 MG, 1X/DAY
     Route: 048
     Dates: start: 20080101, end: 20080101
  2. CHANTIX [Suspect]
     Indication: SMOKING CESSATION THERAPY
     Dosage: 0.5 MG, 1X/DAY, ORAL : 0.5 MG, 1X/DAY
     Route: 048
     Dates: start: 20100406, end: 20100413
  3. PREDNISONE [Concomitant]

REACTIONS (2)
  - AGGRESSION [None]
  - ANGER [None]
